FAERS Safety Report 10977937 (Version 2)
Quarter: 2015Q2

REPORT INFORMATION
  Report Type: Spontaneous
  Country: BR (occurrence: BR)
  Receive Date: 20150402
  Receipt Date: 20150506
  Transmission Date: 20150821
  Serious: Yes (Other)
  Sender: FDA-Public Use
  Company Number: BR-SA-2015SA037014

PATIENT
  Age: 46 Year
  Sex: Male
  Weight: 61 kg

DRUGS (1)
  1. FABRAZYME [Suspect]
     Active Substance: AGALSIDASE BETA
     Indication: FABRY^S DISEASE
     Dosage: DOSE: 02 VIALS PER INFUSION
     Route: 041
     Dates: start: 20140507

REACTIONS (8)
  - Malaise [Not Recovered/Not Resolved]
  - Wound infection [Unknown]
  - Pain [Recovered/Resolved]
  - Limb injury [Recovered/Resolved]
  - Inflammation [Recovered/Resolved]
  - Dizziness [Not Recovered/Not Resolved]
  - Insomnia [Recovered/Resolved]
  - Pyrexia [Recovered/Resolved]

NARRATIVE: CASE EVENT DATE: 201503
